FAERS Safety Report 6354711-1 (Version None)
Quarter: 2009Q3

REPORT INFORMATION
  Report Type: 
  Country: None (occurrence: None)
  Receive Date: 20090914
  Receipt Date: 20090908
  Transmission Date: 20100115
  Serious: Yes (Other)
  Sender: FDA-Public Use
  Company Number: US-ELI_LILLY_AND_COMPANY-US200909001849

PATIENT
  Sex: Female

DRUGS (5)
  1. HUMULIN N [Suspect]
     Dosage: 42 U, EACH MORNING
     Dates: start: 19880101
  2. HUMULIN N [Suspect]
     Dosage: 28 U, EACH EVENING
  3. HUMULIN R [Suspect]
     Dosage: 13 U, EACH MORNING
     Dates: start: 19880101
  4. HUMULIN R [Suspect]
     Dosage: 10 U, EACH EVENING
  5. COUMADIN [Concomitant]

REACTIONS (8)
  - BLINDNESS [None]
  - CATARACT [None]
  - EYE OPERATION COMPLICATION [None]
  - FOOT AMPUTATION [None]
  - GLAUCOMA [None]
  - MALAISE [None]
  - VISUAL IMPAIRMENT [None]
  - WOUND [None]
